FAERS Safety Report 11274382 (Version 3)
Quarter: 2015Q3

REPORT INFORMATION
  Report Type: Report from Study
  Country: JP (occurrence: JP)
  Receive Date: 20150715
  Receipt Date: 20150930
  Transmission Date: 20151125
  Serious: Yes (Death, Hospitalization)
  Sender: FDA-Public Use
  Company Number: JP-INCYTE CORPORATION-2015IN003410

PATIENT
  Age: 65 Year
  Sex: Male
  Weight: 59 kg

DRUGS (3)
  1. PLATELETS [Concomitant]
     Active Substance: HUMAN PLATELET, ALLOGENIC
     Indication: MYELOFIBROSIS
     Dosage: 10 IU, UNK
     Route: 065
  2. JAKAFI [Suspect]
     Active Substance: RUXOLITINIB
     Indication: MYELOFIBROSIS
     Dosage: 5 MG, QD
     Route: 048
     Dates: start: 20140930, end: 20141017
  3. CONCENTRATED RED CELLS [Concomitant]
     Active Substance: HUMAN RED BLOOD CELL
     Indication: MYELOFIBROSIS
     Dosage: 2 IU, UNK
     Route: 065

REACTIONS (2)
  - Bone marrow failure [Not Recovered/Not Resolved]
  - Platelet count decreased [Fatal]

NARRATIVE: CASE EVENT DATE: 20141014
